FAERS Safety Report 4960222-8 (Version None)
Quarter: 2006Q1

REPORT INFORMATION
  Report Type: 
  Country: None (occurrence: None)
  Receive Date: 20060328
  Receipt Date: 20060321
  Transmission Date: 20060701
  Serious: Yes (Other)
  Sender: FDA-Public Use
  Company Number: 2006008825

PATIENT
  Age: 50 Year
  Sex: Male
  Weight: 117.9352 kg

DRUGS (6)
  1. LYRICA [Suspect]
     Indication: SENSORY DISTURBANCE
     Dosage: (75 MG,), ORAL
     Route: 048
     Dates: start: 20060115, end: 20060115
  2. TENORMIN [Concomitant]
  3. OXYCONTIN [Concomitant]
  4. MORPHINE [Concomitant]
  5. TYLOX (OXYCODONE HYDROCHLORIDE, PARACETAMOL) [Concomitant]
  6. VALIUM [Concomitant]

REACTIONS (7)
  - CHOKING [None]
  - CONDITION AGGRAVATED [None]
  - DYSPNOEA [None]
  - INCREASED UPPER AIRWAY SECRETION [None]
  - NASOPHARYNGITIS [None]
  - PARAESTHESIA [None]
  - PHARYNGEAL OEDEMA [None]
